FAERS Safety Report 6059523-4 (Version None)
Quarter: 2009Q1

REPORT INFORMATION
  Report Type: 
  Country: None (occurrence: None)
  Receive Date: 20090130
  Receipt Date: 20090123
  Transmission Date: 20090719
  Serious: Yes (Hospitalization, Other)
  Sender: FDA-Public Use
  Company Number: MX-ELI_LILLY_AND_COMPANY-MX200901004204

PATIENT
  Age: 55 Year
  Sex: Female
  Weight: 52 kg

DRUGS (8)
  1. HUMULIN N [Suspect]
     Indication: BLOOD GLUCOSE INCREASED
     Dosage: 30 IU, EACH MORNING
     Route: 058
     Dates: start: 20081001, end: 20090120
  2. HUMULIN N [Suspect]
     Dosage: 15 IU, EACH EVENING
     Route: 058
     Dates: start: 20081001, end: 20090120
  3. ASPIRIN [Concomitant]
     Dosage: UNK, UNKNOWN
     Route: 065
  4. PLAVIX [Concomitant]
     Dosage: UNK, UNKNOWN
     Route: 065
  5. SIMVASTATIN [Concomitant]
     Dosage: UNK, UNKNOWN
     Route: 065
  6. METOPROLOL [Concomitant]
     Dosage: UNK, UNKNOWN
     Route: 065
  7. METFORMIN [Concomitant]
     Dosage: UNK, UNKNOWN
     Route: 065
  8. CAPTOPRIL [Concomitant]
     Dosage: UNK, UNKNOWN
     Route: 065

REACTIONS (5)
  - ARTERIAL OCCLUSIVE DISEASE [None]
  - DIZZINESS [None]
  - INFARCTION [None]
  - INFECTION [None]
  - WITHDRAWAL SYNDROME [None]
